FAERS Safety Report 9398550 (Version 1)
Quarter: 2013Q3

REPORT INFORMATION
  Report Type: Report from Study
  Country: JP (occurrence: JP)
  Receive Date: 20130712
  Receipt Date: 20130712
  Transmission Date: 20140515
  Serious: Yes (Hospitalization)
  Sender: FDA-Public Use
  Company Number: JP-BRISTOL-MYERS SQUIBB COMPANY-19099720

PATIENT
  Age: 46 Year
  Sex: Male

DRUGS (7)
  1. STOCRIN TABS [Suspect]
     Indication: HIV INFECTION
     Dosage: STOCRIN 200 MG FILM COATED TABS
     Route: 048
     Dates: start: 20050401, end: 20130108
  2. TRUVADA [Suspect]
     Indication: HIV INFECTION
     Dosage: 1DF:1 TABS
     Route: 048
     Dates: start: 20050727
  3. DAONIL [Concomitant]
  4. ACTOS [Concomitant]
     Dosage: TABS
  5. NORVASC [Concomitant]
     Dosage: TABS
  6. METGLUCO [Concomitant]
     Dosage: TABS
     Dates: end: 20130403
  7. BEZATOL SR [Concomitant]
     Dosage: TABS

REACTIONS (3)
  - Angina pectoris [Not Recovered/Not Resolved]
  - Movement disorder [Not Recovered/Not Resolved]
  - Nightmare [Not Recovered/Not Resolved]
